FAERS Safety Report 20374030 (Version 1)
Quarter: 2022Q1

REPORT INFORMATION
  Report Type: Spontaneous
  Country: US (occurrence: None)
  Receive Date: 20220124
  Receipt Date: 20220124
  Transmission Date: 20220423
  Serious: Yes (Hospitalization)
  Sender: FDA-Public Use
  Company Number: None

PATIENT
  Age: 59 Year
  Sex: Female

DRUGS (6)
  1. GILENYA [Suspect]
     Active Substance: FINGOLIMOD HYDROCHLORIDE
     Indication: Multiple sclerosis
     Route: 048
     Dates: start: 20150909
  2. ASACOL [Concomitant]
  3. ASPIRIN CHW [Concomitant]
  4. BENTYL CAP [Concomitant]
  5. VITAMIN D [Concomitant]
  6. OMEPRAZOLE CAP [Concomitant]

REACTIONS (2)
  - Headache [None]
  - Cerebrovascular accident [None]

NARRATIVE: CASE EVENT DATE: 20220119
